FAERS Safety Report 12223914 (Version 1)
Quarter: 2016Q1

REPORT INFORMATION
  Report Type: Spontaneous
  Country: US (occurrence: US)
  Receive Date: 20160330
  Receipt Date: 20160330
  Transmission Date: 20160526
  Serious: No
  Sender: FDA-Public Use
  Company Number: ALCN2016US002258

PATIENT
  Sex: Female

DRUGS (1)
  1. VIGAMOX [Suspect]
     Active Substance: MOXIFLOXACIN HYDROCHLORIDE
     Indication: EYE INFECTION
     Route: 047

REACTIONS (3)
  - Condition aggravated [Unknown]
  - Eye infection [Unknown]
  - Drug ineffective [Unknown]

NARRATIVE: CASE EVENT DATE: 20160325
